FAERS Safety Report 19673327 (Version 2)
Quarter: 2021Q4

REPORT INFORMATION
  Report Type: Report from Study
  Country: US (occurrence: US)
  Receive Date: 20210809
  Receipt Date: 20211028
  Transmission Date: 20220303
  Serious: Yes (Hospitalization, Other)
  Sender: FDA-Public Use
  Company Number: US-UCBSA-2021036173

PATIENT
  Age: 85 Year
  Sex: Male

DRUGS (2)
  1. LACOSAMIDE [Suspect]
     Active Substance: LACOSAMIDE
     Indication: Seizure
     Dosage: 200 MILLIGRAM, 2X/DAY (BID)
  2. KEPPRA XR [Suspect]
     Active Substance: LEVETIRACETAM
     Indication: Product used for unknown indication
     Dosage: 750MG

REACTIONS (3)
  - Hip fracture [Recovered/Resolved]
  - Surgery [Recovered/Resolved]
  - Fall [Recovered/Resolved]

NARRATIVE: CASE EVENT DATE: 20210418
